FAERS Safety Report 21954860 (Version 1)
Quarter: 2023Q1

REPORT INFORMATION
  Report Type: Spontaneous
  Country: CA (occurrence: CA)
  Receive Date: 20230205
  Receipt Date: 20230205
  Transmission Date: 20230418
  Serious: Yes (Other)
  Sender: FDA-Public Use
  Company Number: None

PATIENT
  Age: 35 Year
  Sex: Male

DRUGS (1)
  1. METHOTREXATE [Suspect]
     Active Substance: METHOTREXATE
     Indication: Idiopathic orbital inflammation
     Route: 065

REACTIONS (4)
  - Disease progression [Unknown]
  - Disorder of orbit [Unknown]
  - Drug ineffective [Unknown]
  - Hepatic enzyme increased [Unknown]
